FAERS Safety Report 16010069 (Version 1)
Quarter: 2019Q1

REPORT INFORMATION
  Report Type: Spontaneous
  Country: TR (occurrence: TR)
  Receive Date: 20190225
  Receipt Date: 20190225
  Transmission Date: 20190418
  Serious: Yes (Other)
  Sender: FDA-Public Use
  Company Number: TR-SA-2019SA050051

PATIENT
  Age: 40 Year
  Sex: Male
  Weight: 75 kg

DRUGS (7)
  1. METHYLPREDNISOLONE. [Concomitant]
     Active Substance: METHYLPREDNISOLONE
     Indication: PREMEDICATION
     Dosage: 125 MG
     Route: 042
     Dates: start: 20190218
  2. LEMTRADA [Suspect]
     Active Substance: ALEMTUZUMAB
     Indication: MULTIPLE SCLEROSIS
     Dosage: 1^1
     Route: 041
     Dates: start: 20190218
  3. PAROL [Concomitant]
     Active Substance: ACETAMINOPHEN
     Indication: ANALGESIC THERAPY
     Dosage: 2^1
     Route: 048
     Dates: start: 20190218
  4. ACYCLOVIR [ACICLOVIR] [Concomitant]
     Active Substance: ACYCLOVIR
     Indication: PREMEDICATION
     Dosage: 200 MG
     Route: 048
     Dates: start: 20190218
  5. METPAMID [METOCLOPRAMIDE] [Concomitant]
     Indication: PREMEDICATION
     Dosage: 10 MG/ 2 ML
     Route: 042
     Dates: start: 20190218
  6. ULCURAN [Concomitant]
     Active Substance: RANITIDINE HYDROCHLORIDE
     Indication: PREMEDICATION
     Dosage: 50 MG/2 ML
     Route: 042
     Dates: start: 20190218
  7. AVIL [PHENIRAMINE MALEATE] [Concomitant]
     Indication: PREMEDICATION
     Dosage: 45.5 MG/2 ML
     Route: 042
     Dates: start: 20190218

REACTIONS (3)
  - Headache [Recovered/Resolved]
  - Delirium [Recovered/Resolved]
  - Tachycardia [Recovered/Resolved]

NARRATIVE: CASE EVENT DATE: 20190218
